FAERS Safety Report 7082946-1 (Version None)
Quarter: 2010Q4

REPORT INFORMATION
  Report Type: 
  Country: None (occurrence: None)
  Receive Date: 20101026
  Receipt Date: 20101014
  Transmission Date: 20110411
  Serious: Yes (Death, Life-Threatening, Hospitalization)
  Sender: FDA-Public Use
  Company Number: CIP10002408

PATIENT
  Age: 83 Year
  Sex: Male

DRUGS (11)
  1. ACTONEL [Suspect]
     Indication: OSTEOPOROSIS
     Dosage: 17.5 MG WEEKLY, ORAL
     Route: 048
     Dates: start: 20081125, end: 20100223
  2. DEPAS (ETIZOLAM) [Concomitant]
  3. LANSOPRAZOLE [Concomitant]
  4. ALL OTHER THERAPEUTIC PRODUCTS [Concomitant]
  5. ARICEPT /01318901/ (DONEPEZIL) [Concomitant]
  6. BEPRICOR /00788901/ (BEPRIDIL) [Concomitant]
  7. NORVASC [Concomitant]
  8. WARFARIN SODIUM [Concomitant]
  9. MUCODYNE (CARBOCISTEINE) [Concomitant]
  10. ALLOPURINOL [Concomitant]
  11. ONEALFA (ALFACALCIDOL) [Concomitant]

REACTIONS (5)
  - CAROTID ARTERY OCCLUSION [None]
  - CEREBRAL ARTERY OCCLUSION [None]
  - CEREBRAL HAEMORRHAGE [None]
  - CEREBRAL INFARCTION [None]
  - CEREBRAL THROMBOSIS [None]
